FAERS Safety Report 15395262 (Version 1)
Quarter: 2018Q3

REPORT INFORMATION
  Report Type: Spontaneous
  Country: US (occurrence: US)
  Receive Date: 20180918
  Receipt Date: 20180918
  Transmission Date: 20181010
  Serious: No
  Sender: FDA-Public Use
  Company Number: US-PFIZER INC-2018132985

PATIENT
  Age: 63 Year
  Sex: Male
  Weight: 112.4 kg

DRUGS (3)
  1. IBRANCE [Suspect]
     Active Substance: PALBOCICLIB
     Dosage: 75 MG, CYCLIC
     Dates: start: 20180413, end: 20180731
  2. NERATINIB [Suspect]
     Active Substance: NERATINIB
     Indication: BLADDER CANCER
     Dosage: 160 MG, CYCLIC, (ONCE A DAY, 28 DAY CYCLE)
  3. IBRANCE [Suspect]
     Active Substance: PALBOCICLIB
     Indication: BLADDER CANCER
     Dosage: 75 MG, CYCLIC (ONCE A DAY, 21?DAY CYCLE)
     Dates: start: 20180314

REACTIONS (3)
  - Neoplasm progression [Not Recovered/Not Resolved]
  - Fatigue [Not Recovered/Not Resolved]
  - Product use in unapproved indication [Unknown]

NARRATIVE: CASE EVENT DATE: 2018
